FAERS Safety Report 18494076 (Version 1)
Quarter: 2020Q4

REPORT INFORMATION
  Report Type: Spontaneous
  Country: None (occurrence: AU)
  Receive Date: 20201112
  Receipt Date: 20201112
  Transmission Date: 20210114
  Serious: Yes (Other)
  Sender: FDA-Public Use
  Company Number: AU-ORION CORPORATION ORION PHARMA-20_00011682

PATIENT
  Age: 58 Year
  Sex: Female

DRUGS (1)
  1. METHOTREXATE. [Suspect]
     Active Substance: METHOTREXATE
     Indication: PSORIASIS
     Route: 065

REACTIONS (5)
  - Stress fracture [Recovered/Resolved]
  - Bone disorder [Recovering/Resolving]
  - Alopecia [Unknown]
  - Intentional product misuse [Unknown]
  - Stomatitis [Unknown]
